FAERS Safety Report 7666448-7 (Version None)
Quarter: 2011Q3

REPORT INFORMATION
  Report Type: 
  Country: None (occurrence: None)
  Receive Date: 20110806
  Receipt Date: 20110529
  Transmission Date: 20111222
  Serious: No
  Sender: FDA-Public Use
  Company Number: US-ABBOTT-11P-163-0729352-00

PATIENT
  Sex: Male
  Weight: 82.174 kg

DRUGS (3)
  1. NIASPAN [Suspect]
     Dates: start: 20110519, end: 20110525
  2. HUMULIN N [Concomitant]
     Indication: PRODUCT USED FOR UNKNOWN INDICATION
     Dosage: IN THE MORNING
  3. NIASPAN [Suspect]
     Indication: PRODUCT USED FOR UNKNOWN INDICATION
     Dates: start: 20110526

REACTIONS (1)
  - BLOOD GLUCOSE ABNORMAL [None]
